FAERS Safety Report 10311276 (Version 4)
Quarter: 2020Q2

REPORT INFORMATION
  Report Type: Report from Study
  Country: US (occurrence: US)
  Receive Date: 20140717
  Receipt Date: 20200416
  Transmission Date: 20200713
  Serious: Yes (Hospitalization, Other)
  Sender: FDA-Public Use
  Company Number: US-SA-2014SA091715

PATIENT
  Age: 86 Year
  Sex: Female

DRUGS (6)
  1. INSULIN GLARGINE [Suspect]
     Active Substance: INSULIN GLARGINE
     Dosage: 18 IU, HS
     Route: 065
  2. INSULIN GLARGINE [Suspect]
     Active Substance: INSULIN GLARGINE
     Dosage: 14 IU, HS
     Route: 065
  3. INSULIN GLARGINE [Suspect]
     Active Substance: INSULIN GLARGINE
     Dosage: 16 IU, HS
     Route: 065
  4. INSULIN GLARGINE [Suspect]
     Active Substance: INSULIN GLARGINE
     Dosage: 25 IU, QD
  5. INSULIN GLARGINE [Suspect]
     Active Substance: INSULIN GLARGINE
     Indication: DIABETES MELLITUS
     Dosage: 20 IU, HS
  6. INSULIN GLARGINE [Suspect]
     Active Substance: INSULIN GLARGINE
     Dosage: 16 IU, QD
     Dates: start: 20190123

REACTIONS (9)
  - Cardiac failure [Not Recovered/Not Resolved]
  - Malaise [Unknown]
  - Neuropathy peripheral [Unknown]
  - Glycosylated haemoglobin increased [Unknown]
  - Peripheral swelling [Not Recovered/Not Resolved]
  - Blood glucose decreased [Recovered/Resolved]
  - Wrong technique in device usage process [Unknown]
  - Weight increased [Not Recovered/Not Resolved]
  - Unevaluable event [Unknown]

NARRATIVE: CASE EVENT DATE: 20140615
